FAERS Safety Report 23835900 (Version 1)
Quarter: 2024Q2

REPORT INFORMATION
  Report Type: Report from Study
  Country: US (occurrence: US)
  Receive Date: 20240509
  Receipt Date: 20240509
  Transmission Date: 20240716
  Serious: Yes (Other)
  Sender: FDA-Public Use
  Company Number: US-ABBVIE-5748754

PATIENT
  Sex: Female

DRUGS (2)
  1. SKYRIZI [Suspect]
     Active Substance: RISANKIZUMAB-RZAA
     Indication: Psoriasis
     Dosage: STRENGTH : 150MG/ML?150 MG/ML INJECT ONE PEN SUBCUTANEOUSLY AT WEEK 0.
     Route: 058
     Dates: start: 20240119, end: 20240119
  2. SKYRIZI [Suspect]
     Active Substance: RISANKIZUMAB-RZAA
     Dosage: STRENGTH : 150MG/ML?150 MG/ML INJECT ONE PEN SUBCUTANEOUSLY AT WEEK 4.
     Route: 058
     Dates: start: 20240216

REACTIONS (2)
  - Arthritis infective [Unknown]
  - Wound infection staphylococcal [Not Recovered/Not Resolved]

NARRATIVE: CASE EVENT DATE: 20240101
